FAERS Safety Report 14389436 (Version 2)
Quarter: 2018Q2

REPORT INFORMATION
  Report Type: Spontaneous
  Country: US (occurrence: US)
  Receive Date: 20180115
  Receipt Date: 20180615
  Transmission Date: 20180711
  Serious: Yes (Other)
  Sender: FDA-Public Use
  Company Number: US-SA-2017SA244328

PATIENT
  Age: 44 Year
  Sex: Female
  Weight: 58.96 kg

DRUGS (7)
  1. DEXAMETHASONE. [Concomitant]
     Active Substance: DEXAMETHASONE
  2. TAXOTERE [Suspect]
     Active Substance: DOCETAXEL
     Indication: BREAST CANCER
     Dosage: 160 MG,Q3W
     Route: 042
     Dates: start: 20040730, end: 20040730
  3. NEOSAR [Concomitant]
     Active Substance: CYCLOPHOSPHAMIDE
     Indication: PRODUCT USED FOR UNKNOWN INDICATION
  4. TAXOTERE [Suspect]
     Active Substance: DOCETAXEL
     Dosage: 160 MG,Q3W
     Route: 042
     Dates: start: 20041001, end: 20041001
  5. ZOFRAN [ONDANSETRON] [Concomitant]
  6. CYTOXAN [Concomitant]
     Active Substance: CYCLOPHOSPHAMIDE
     Indication: PRODUCT USED FOR UNKNOWN INDICATION
     Dosage: 980 MG
     Dates: start: 20040604, end: 20040716
  7. DOXORUBICIN [Concomitant]
     Active Substance: DOXORUBICIN
     Indication: PRODUCT USED FOR UNKNOWN INDICATION
     Dosage: 98 MG
     Dates: start: 20040604, end: 20040716

REACTIONS (2)
  - Psychological trauma [Unknown]
  - Alopecia [Recovering/Resolving]

NARRATIVE: CASE EVENT DATE: 20060401
